FAERS Safety Report 5091473-2 (Version None)
Quarter: 2006Q3

REPORT INFORMATION
  Report Type: 
  Country: None (occurrence: None)
  Receive Date: 20060829
  Receipt Date: 20060828
  Transmission Date: 20061208
  Serious: Yes (Hospitalization)
  Sender: FDA-Public Use
  Company Number: 06US00258

PATIENT
  Age: 54 Year
  Sex: Female

DRUGS (1)
  1. AUGMENTIN [Suspect]
     Route: 065

REACTIONS (5)
  - ABDOMINAL PAIN [None]
  - CHEST PAIN [None]
  - HEADACHE [None]
  - PYREXIA [None]
  - VOMITING [None]
